FAERS Safety Report 9207111 (Version 1)
Quarter: 2013Q1

REPORT INFORMATION
  Report Type: Spontaneous
  Country: US (occurrence: None)
  Receive Date: 20120718
  Receipt Date: 20120718
  Transmission Date: 20140127
  Serious: Yes (Other)
  Sender: FDA-Public Use
  Company Number: 163-50794-12022677

PATIENT
  Age: 83 Year
  Sex: Male
  Weight: 72.58 kg

DRUGS (11)
  1. VIDAZA [Suspect]
     Indication: MYELODYSPLASTIC SYNDROME
     Dosage: X 7 DAYS
     Route: 042
     Dates: start: 20120220, end: 20120221
  2. ALOXI (PALONOSETRON HYDROCHLORIDE) (UNKNOWN) [Concomitant]
  3. DECADRON (DEXAMETHASONE (UKNOWN) [Concomitant]
  4. CORVITE (CORVITE ) UNKNOWN [Concomitant]
  5. ASPIRIN (ACETYLSALICYLIC ACID) UNKNOWN [Concomitant]
  6. PLAVIX (CLOPIDOGREL SULFATE) UNKNOWN) [Concomitant]
  7. LIPITOR (ATORVASTATIN)(UNKNOWN) [Concomitant]
  8. AVAPRO(IRBESARTAN)UNKNOWN [Concomitant]
  9. XANAX (ALPRAZOLAM)UNKNOWN [Concomitant]
  10. METROLOL (METOPROLOL)UNKNOWN [Concomitant]
  11. NITROGLYCERINE (GLYCERYL TRINTRATE) (UNKNOWN) [Concomitant]

REACTIONS (1)
  - Urticaria [None]
